FAERS Safety Report 24344221 (Version 1)
Quarter: 2024Q3

REPORT INFORMATION
  Report Type: Report from Study
  Country: US (occurrence: US)
  Receive Date: 20240920
  Receipt Date: 20240920
  Transmission Date: 20241017
  Serious: Yes (Hospitalization)
  Sender: JOHNSON AND JOHNSON
  Company Number: US-JNJFOC-20240313136

PATIENT
  Age: 51 Year
  Sex: Male

DRUGS (5)
  1. SPRAVATO [Suspect]
     Active Substance: ESKETAMINE
     Indication: Depression
     Dosage: 84 MG, TOTAL OF 1 DOSE
     Dates: start: 20240227, end: 20240227
  2. SPRAVATO [Suspect]
     Active Substance: ESKETAMINE
     Dosage: 56 MG, TOTAL OF 2 DOSES
     Dates: start: 20240311, end: 20240503
  3. SPRAVATO [Suspect]
     Active Substance: ESKETAMINE
     Dosage: 84 MG, TOTAL OF 5 DOSES
     Dates: start: 20240507, end: 20240530
  4. SPRAVATO [Suspect]
     Active Substance: ESKETAMINE
     Dates: start: 20240904, end: 20240904
  5. SPRAVATO [Suspect]
     Active Substance: ESKETAMINE
     Dosage: 84 MG, TOTAL OF 2 DOSES, LAST DOSE: 13/SEP/2024
     Dates: start: 20240905

REACTIONS (3)
  - Infection [Unknown]
  - Pain in jaw [Unknown]
  - Feeling abnormal [Unknown]

NARRATIVE: CASE EVENT DATE: 20240101
